FAERS Safety Report 8434801-X (Version None)
Quarter: 2012Q2

REPORT INFORMATION
  Report Type: 
  Country: None (occurrence: None)
  Receive Date: 20120614
  Receipt Date: 20120604
  Transmission Date: 20120825
  Serious: Yes (Other)
  Sender: FDA-Public Use
  Company Number: US-JNJFOC-20120405882

PATIENT
  Sex: Female

DRUGS (3)
  1. KLONOPIN [Concomitant]
     Indication: ANXIETY
     Route: 065
  2. DEPAKOTE [Concomitant]
     Indication: AFFECTIVE DISORDER
     Route: 065
  3. RISPERDAL [Suspect]
     Indication: MENTAL DISORDER
     Route: 048

REACTIONS (5)
  - APHASIA [None]
  - FEELING ABNORMAL [None]
  - ACTIVITIES OF DAILY LIVING IMPAIRED [None]
  - FEELING JITTERY [None]
  - TREMOR [None]
